FAERS Safety Report 5038473-6 (Version None)
Quarter: 2006Q2

REPORT INFORMATION
  Report Type: 
  Country: None (occurrence: None)
  Receive Date: 20060601
  Receipt Date: 20060123
  Transmission Date: 20061013
  Serious: No
  Sender: FDA-Public Use
  Company Number: 2006PV007491

PATIENT
  Age: 50 Year
  Sex: Male
  Weight: 158.759 kg

DRUGS (6)
  1. BYETTA [Suspect]
     Indication: DIABETES MELLITUS NON-INSULIN-DEPENDENT
     Dosage: 5 MCG;BID;SC
     Route: 058
     Dates: start: 20051221, end: 20060303
  2. LANTUS [Concomitant]
  3. HUMALOG [Concomitant]
  4. GLUCOPHAGE [Concomitant]
  5. MORPHINE [Concomitant]
  6. ACTOS [Concomitant]

REACTIONS (9)
  - BLOOD GLUCOSE DECREASED [None]
  - CONSTIPATION [None]
  - DIARRHOEA [None]
  - GASTROINTESTINAL PAIN [None]
  - INSOMNIA [None]
  - NERVOUSNESS [None]
  - NIGHT SWEATS [None]
  - THERAPEUTIC RESPONSE UNEXPECTED [None]
  - WEIGHT DECREASED [None]
